FAERS Safety Report 7643937-2 (Version None)
Quarter: 2011Q3

REPORT INFORMATION
  Report Type: 
  Country: None (occurrence: None)
  Receive Date: 20110729
  Receipt Date: 20110727
  Transmission Date: 20111222
  Serious: Yes (Hospitalization)
  Sender: FDA-Public Use
  Company Number: DE-SANOFI-AVENTIS-2011SA048110

PATIENT
  Age: 54 Year
  Sex: Female

DRUGS (10)
  1. BEVACIZUMAB [Suspect]
     Route: 042
     Dates: start: 20101214
  2. FLUOROURACIL [Suspect]
     Dosage: FREQUENCY: MQ
     Route: 042
     Dates: start: 20101214
  3. FLUOROURACIL [Suspect]
     Dosage: FREQUENCY: MQ
     Route: 042
     Dates: start: 20101214
  4. ALOXI [Concomitant]
     Dates: start: 20101214, end: 20101214
  5. LEVOTHYROXINE/POTASSIUM IODIDE [Concomitant]
     Dates: start: 20050101
  6. RAMIPRIL [Concomitant]
     Dates: start: 20080101
  7. BEVACIZUMAB [Suspect]
     Dosage: FREQUENCY; MQ
     Route: 042
     Dates: start: 20101214
  8. LEUCOVORIN CALCIUM [Suspect]
     Dosage: FREQUENCY: MQ
     Route: 042
  9. OXALIPLATIN [Suspect]
     Dosage: FREQUENCY: MQ
     Route: 042
     Dates: start: 20101214
  10. DEXAMETHASONE [Concomitant]
     Dates: start: 20101214, end: 20101217

REACTIONS (2)
  - GASTROINTESTINAL STOMA COMPLICATION [None]
  - POST PROCEDURAL HAEMORRHAGE [None]
